FAERS Safety Report 5363648-6 (Version None)
Quarter: 2007Q2

REPORT INFORMATION
  Report Type: 
  Country: None (occurrence: None)
  Receive Date: 20070618
  Receipt Date: 20070618
  Transmission Date: 20071010
  Serious: Yes (Other)
  Sender: FDA-Public Use
  Company Number: None

PATIENT
  Age: 35 Year
  Sex: Male
  Weight: 67 kg

DRUGS (1)
  1. XANAX [Suspect]
     Indication: GENERALISED ANXIETY DISORDER
     Dosage: 05 MG BD PO
     Route: 048
     Dates: start: 20070528, end: 20070610

REACTIONS (1)
  - EJACULATION DISORDER [None]
